FAERS Safety Report 21861027 (Version 1)
Quarter: 2023Q1

REPORT INFORMATION
  Report Type: Other
  Country: IT (occurrence: IT)
  Receive Date: 20230113
  Receipt Date: 20230113
  Transmission Date: 20230418
  Serious: Yes (Other)
  Sender: FDA-Public Use
  Company Number: None

PATIENT
  Age: 72 Year
  Sex: Male

DRUGS (5)
  1. OMNIPAQUE [Suspect]
     Active Substance: IOHEXOL
     Indication: Computerised tomogram abdomen
     Dosage: 110 ML, SINGLE
     Route: 042
     Dates: start: 20221021, end: 20221021
  2. OMNIPAQUE [Suspect]
     Active Substance: IOHEXOL
     Indication: Product used for unknown indication
  3. GENTAMICIN [Suspect]
     Active Substance: GENTAMICIN
     Indication: Abdominal wall wound
     Dosage: 400 MG, ^DIE^
     Route: 042
     Dates: start: 20221017, end: 20221025
  4. SIMVASTATIN [Concomitant]
     Active Substance: SIMVASTATIN
  5. ENALAPRIL [Concomitant]
     Active Substance: ENALAPRIL
     Indication: Hypertension

REACTIONS (2)
  - Renal failure [Recovering/Resolving]
  - Medication error [Recovered/Resolved]
